FAERS Safety Report 8938522 (Version 3)
Quarter: 2012Q4

REPORT INFORMATION
  Report Type: 
  Country: DE (occurrence: DE)
  Receive Date: 20121203
  Receipt Date: 20121214
  Transmission Date: 20130627
  Serious: Yes (Other)
  Sender: FDA-Public Use
  Company Number: PHHY2012DE110060

PATIENT
  Age: 59 Year
  Sex: Female
  Weight: 78 kg

DRUGS (5)
  1. ZOMETA [Suspect]
     Indication: BREAST CANCER
     Dosage: 4 mg, every 6 months
     Route: 042
     Dates: start: 201009, end: 201209
  2. CALCIUM [Concomitant]
     Indication: OSTEOPENIA
     Dosage: 500 mg, BID
     Route: 048
  3. CALCIUM [Concomitant]
     Indication: OSTEOPOROSIS
  4. VITAMIN D [Concomitant]
     Indication: OSTEOPENIA
     Dosage: 20000 U, UNK
     Route: 048
  5. VITAMIN D [Concomitant]
     Indication: OSTEOPOROSIS

REACTIONS (1)
  - Stress fracture [Recovering/Resolving]
